FAERS Safety Report 15869266 (Version 4)
Quarter: 2019Q1

REPORT INFORMATION
  Report Type: Spontaneous
  Country: JP (occurrence: JP)
  Receive Date: 20190125
  Receipt Date: 20190313
  Transmission Date: 20190417
  Serious: Yes (Death, Hospitalization, Other)
  Sender: FDA-Public Use
  Company Number: JP-ELI_LILLY_AND_COMPANY-JP201901010893

PATIENT
  Age: 50 Year
  Sex: Female
  Weight: 55 kg

DRUGS (6)
  1. ERBITUX [Suspect]
     Active Substance: CETUXIMAB
     Indication: COLON CANCER
     Dosage: 595 MG, UNKNOWN
     Route: 041
     Dates: start: 20181215, end: 20181215
  2. LIXIANA [Concomitant]
     Active Substance: EDOXABAN TOSYLATE
     Indication: PORTAL VEIN THROMBOSIS
     Dosage: 30 MG, DAILY
     Route: 048
     Dates: start: 20180521, end: 20190113
  3. CANDESARTAN. [Concomitant]
     Active Substance: CANDESARTAN
     Indication: HYPERTENSION
     Dosage: 4 MG, DAILY
     Route: 048
     Dates: start: 20180709
  4. ERBITUX [Suspect]
     Active Substance: CETUXIMAB
     Dosage: 370 MG, UNKNOWN
     Route: 041
     Dates: start: 201812, end: 20190104
  5. NIFEDIPINE. [Concomitant]
     Active Substance: NIFEDIPINE
     Indication: HYPERTENSION
     Dosage: 20 MG, DAILY
     Route: 048
     Dates: start: 20180723
  6. LONSURF [Suspect]
     Active Substance: TIPIRACIL HYDROCHLORIDE\TRIFLURIDINE
     Indication: COLON CANCER
     Dosage: 50 MG, UNKNOWN
     Route: 048
     Dates: start: 20181215, end: 20190104

REACTIONS (15)
  - Mouth breathing [Unknown]
  - Peripheral artery thrombosis [Not Recovered/Not Resolved]
  - Metastases to lung [Fatal]
  - Metastases to liver [Fatal]
  - Metastases to bone [Fatal]
  - General physical health deterioration [Unknown]
  - Cardiac arrest [Fatal]
  - Hepatic failure [Fatal]
  - Blood pressure decreased [Unknown]
  - Oliguria [Unknown]
  - Metastases to lymph nodes [Fatal]
  - Depressed level of consciousness [Unknown]
  - Off label use [Unknown]
  - Metastases to peritoneum [Fatal]
  - Hepatomegaly [Unknown]

NARRATIVE: CASE EVENT DATE: 201901
